FAERS Safety Report 13914070 (Version 1)
Quarter: 2017Q3

REPORT INFORMATION
  Report Type: Spontaneous
  Country: US (occurrence: US)
  Receive Date: 20170828
  Receipt Date: 20170828
  Transmission Date: 20171127
  Serious: No
  Sender: FDA-Public Use
  Company Number: US-ROCHE-1141065

PATIENT
  Sex: Female
  Weight: 55.5 kg

DRUGS (7)
  1. SYNTHROID [Concomitant]
     Active Substance: LEVOTHYROXINE SODIUM
     Route: 065
  2. ESTROGEN [Concomitant]
     Active Substance: ESTROGENS
     Dosage: PER 21 DAYS
     Route: 065
  3. CORTEF [Concomitant]
     Active Substance: HYDROCORTISONE
     Dosage: EVERY DAY BEFORE NOON
     Route: 065
  4. CORTEF [Concomitant]
     Active Substance: HYDROCORTISONE
     Dosage: EVERY DAY AFTER NOON
     Route: 065
  5. NUTROPIN AQ [Suspect]
     Active Substance: SOMATROPIN
     Indication: HYPOPITUITARISM
     Route: 058
     Dates: start: 199703
  6. PROVERA [Concomitant]
     Active Substance: MEDROXYPROGESTERONE ACETATE
     Route: 065
  7. NUTROPIN AQ [Suspect]
     Active Substance: SOMATROPIN
     Dosage: INCREASE DOSE
     Route: 058

REACTIONS (2)
  - Hot flush [Recovered/Resolved]
  - Abdominal pain [Unknown]
